FAERS Safety Report 21568579 (Version 1)
Quarter: 2022Q4

REPORT INFORMATION
  Report Type: Spontaneous
  Country: None (occurrence: US)
  Receive Date: 20221108
  Receipt Date: 20221108
  Transmission Date: 20230112
  Serious: Yes (Death, Life-Threatening, Other)
  Sender: FDA-Public Use
  Company Number: US-Vero Biotech-2134662

PATIENT
  Age: 53 Year
  Sex: Male

DRUGS (2)
  1. GENOSYL [Suspect]
     Active Substance: NITRIC OXIDE
     Indication: Mitral valve replacement
     Route: 055
     Dates: start: 20221018
  2. GENOSYL [Suspect]
     Active Substance: NITRIC OXIDE

REACTIONS (5)
  - Death [Fatal]
  - Pulmonary arterial pressure increased [Recovered/Resolved]
  - Pulseless electrical activity [Recovered/Resolved]
  - Oxygen saturation decreased [Recovered/Resolved]
  - Device occlusion [Unknown]

NARRATIVE: CASE EVENT DATE: 20221021
